FAERS Safety Report 23934535 (Version 3)
Quarter: 2024Q3

REPORT INFORMATION
  Report Type: Report from Study
  Country: IN (occurrence: IN)
  Receive Date: 20240603
  Receipt Date: 20240716
  Transmission Date: 20241016
  Serious: Yes (Life-Threatening)
  Sender: ROCHE
  Company Number: IN-ROCHE-3571763

PATIENT
  Age: 76 Year
  Sex: Female

DRUGS (1)
  1. ALECENSA [Suspect]
     Active Substance: ALECTINIB HYDROCHLORIDE
     Indication: Lung adenocarcinoma
     Route: 048

REACTIONS (6)
  - Swelling [Unknown]
  - Constipation [Unknown]
  - Chest pain [Unknown]
  - Dyspnoea [Unknown]
  - Chest discomfort [Unknown]
  - Somnolence [Unknown]
